FAERS Safety Report 9505705 (Version 1)
Quarter: 2013Q1

REPORT INFORMATION
  Report Type: Spontaneous
  Country: US (occurrence: None)
  Receive Date: 20130220
  Receipt Date: 20130220
  Transmission Date: 20140127
  Serious: No
  Sender: FDA-Public Use
  Company Number: 1000041030

PATIENT
  Sex: Male

DRUGS (5)
  1. VIIBRYD (VILAZODONE HYDROCHLORIDE) (TABLETS) [Suspect]
     Route: 048
     Dates: start: 201210
  2. OXYCONTIN (OXYCODONE HYDROCHLORIDE) (OXYCODONE HYDROCHLORIDE) [Concomitant]
  3. GABAPENTIN (GABAPENTIN) (GABAPENTIN) [Concomitant]
  4. ZYPREXA (OLANZAPINE) (OLANZAPINE) [Concomitant]
  5. ALPRAZOLAM (ALPRAZOLAM) (ALPRAZOLAM) [Concomitant]

REACTIONS (1)
  - Pain [None]
